FAERS Safety Report 6543614-5 (Version None)
Quarter: 2010Q1

REPORT INFORMATION
  Report Type: 
  Country: None (occurrence: None)
  Receive Date: 20100119
  Receipt Date: 20100119
  Transmission Date: 20100710
  Serious: No
  Sender: FDA-Public Use
  Company Number: None

PATIENT
  Age: 61 Year
  Sex: Female

DRUGS (1)
  1. ESTRADIOL [Suspect]
     Indication: MENOPAUSAL SYMPTOMS
     Dosage: 0.1 MG 2X WEEKLY PATCH
     Dates: start: 20091102

REACTIONS (2)
  - DRUG INEFFECTIVE [None]
  - PRODUCT ADHESION ISSUE [None]
